FAERS Safety Report 11879020 (Version 1)
Quarter: 2015Q4

REPORT INFORMATION
  Report Type: Spontaneous
  Country: GB (occurrence: GB)
  Receive Date: 20151230
  Receipt Date: 20151230
  Transmission Date: 20160305
  Serious: Yes (Other)
  Sender: FDA-Public Use
  Company Number: GB-TEVA-620706ACC

PATIENT
  Age: 23 Year
  Sex: Female
  Weight: 96.61 kg

DRUGS (3)
  1. ERYMAX [Suspect]
     Active Substance: ERYTHROMYCIN
     Indication: LOWER RESPIRATORY TRACT INFECTION
     Route: 048
     Dates: start: 20151212, end: 20151213
  2. INHALERS [Concomitant]
     Active Substance: UNSPECIFIED INGREDIENT
  3. ANALGESICS [Concomitant]
     Active Substance: UNSPECIFIED INGREDIENT
     Indication: ANALGESIC THERAPY

REACTIONS (2)
  - Abdominal pain [Not Recovered/Not Resolved]
  - Exposure during pregnancy [Unknown]

NARRATIVE: CASE EVENT DATE: 20151213
